FAERS Safety Report 14099212 (Version 1)
Quarter: 2017Q4

REPORT INFORMATION
  Report Type: Spontaneous
  Country: US (occurrence: US)
  Receive Date: 20171017
  Receipt Date: 20171017
  Transmission Date: 20180321
  Serious: Yes (Death)
  Sender: FDA-Public Use
  Company Number: US-AKORN PHARMACEUTICALS-2017AKN01206

PATIENT
  Sex: Male

DRUGS (1)
  1. AMICAR [Suspect]
     Active Substance: AMINOCAPROIC ACID
     Dosage: UNK

REACTIONS (1)
  - Death [Fatal]
